FAERS Safety Report 18871281 (Version 4)
Quarter: 2022Q1

REPORT INFORMATION
  Report Type: Spontaneous
  Country: US (occurrence: US)
  Receive Date: 20210210
  Receipt Date: 20220125
  Transmission Date: 20220423
  Serious: No
  Sender: FDA-Public Use
  Company Number: US-PFIZER INC-2021106126

PATIENT
  Age: 63 Year
  Sex: Female
  Weight: 56.3 kg

DRUGS (1)
  1. PREMPRO [Suspect]
     Active Substance: ESTROGENS, CONJUGATED\MEDROXYPROGESTERONE ACETATE
     Indication: Menopausal symptoms
     Dosage: 1 DF, 1X/DAY
     Route: 048

REACTIONS (2)
  - Hypoacusis [Unknown]
  - Nausea [Unknown]
